FAERS Safety Report 13617314 (Version 1)
Quarter: 2017Q2

REPORT INFORMATION
  Report Type: Spontaneous
  Country: US (occurrence: US)
  Receive Date: 20170606
  Receipt Date: 20170606
  Transmission Date: 20170830
  Serious: No
  Sender: FDA-Public Use
  Company Number: US-SA-2016SA210859

PATIENT
  Age: 74 Year
  Sex: Female

DRUGS (4)
  1. LANTUS [Suspect]
     Active Substance: INSULIN GLARGINE
     Indication: TYPE 2 DIABETES MELLITUS
     Dosage: DOSE:30 UNIT(S)
     Route: 065
     Dates: start: 2008, end: 2016
  2. HUMALOG [Concomitant]
     Active Substance: INSULIN LISPRO
     Dosage: AT MEALTIMES
  3. LANTUS SOLOSTAR [Suspect]
     Active Substance: INSULIN GLARGINE
     Indication: TYPE 2 DIABETES MELLITUS
     Route: 065
  4. SOLOSTAR [Concomitant]
     Active Substance: DEVICE

REACTIONS (14)
  - Heart rate increased [Unknown]
  - Fall [Unknown]
  - Myalgia [Recovered/Resolved]
  - Pulse abnormal [Unknown]
  - Muscular weakness [Unknown]
  - Mobility decreased [Unknown]
  - Eye disorder [Unknown]
  - Condition aggravated [Unknown]
  - Cardiac disorder [Unknown]
  - Feeling cold [Unknown]
  - Gait disturbance [Unknown]
  - Loss of personal independence in daily activities [Unknown]
  - Drug dose omission [Unknown]
  - Bone pain [Recovered/Resolved]
